FAERS Safety Report 8797597 (Version 1)
Quarter: 2012Q4

REPORT INFORMATION
  Report Type: 
  Country: JP (occurrence: US)
  Receive Date: 20120920
  Receipt Date: 20120920
  Transmission Date: 20130627
  Serious: Yes (Other)
  Sender: FDA-Public Use
  Company Number: US-JNJFOC-20100707105

PATIENT
  Age: 59 Year
  Sex: Male

DRUGS (1)
  1. LEVAQUIN [Suspect]
     Indication: BACTERIAL INFECTION
     Route: 048

REACTIONS (3)
  - Rotator cuff syndrome [Recovering/Resolving]
  - Rotator cuff syndrome [Recovering/Resolving]
  - Tendon rupture [Recovering/Resolving]
